FAERS Safety Report 13610712 (Version 1)
Quarter: 2017Q2

REPORT INFORMATION
  Report Type: Spontaneous
  Country: US (occurrence: US)
  Receive Date: 20170605
  Receipt Date: 20170605
  Transmission Date: 20170830
  Serious: Yes (Hospitalization, Other)
  Sender: FDA-Public Use
  Company Number: US-NOVOPROD-500711

PATIENT
  Age: 49 Year
  Sex: Female
  Weight: 109.98 kg

DRUGS (6)
  1. NOVOLOG [Suspect]
     Active Substance: INSULIN ASPART
     Indication: TYPE 2 DIABETES MELLITUS
     Dosage: 10 UNITS WITH EVERY MEAL
     Route: 058
     Dates: start: 200712
  2. NOVOLOG [Suspect]
     Active Substance: INSULIN ASPART
     Dosage: 27 U, SINGLE
     Route: 058
     Dates: start: 201612
  3. NOVOLOG [Suspect]
     Active Substance: INSULIN ASPART
     Dosage: SLIDING SCALE
     Route: 058
     Dates: start: 200712
  4. NOVOLOG [Suspect]
     Active Substance: INSULIN ASPART
     Dosage: 27 U, SINGLE
     Route: 058
     Dates: start: 201612
  5. LANTUS [Suspect]
     Active Substance: INSULIN GLARGINE
     Indication: TYPE 2 DIABETES MELLITUS
     Dosage: 20 U, BID
     Route: 058
     Dates: start: 20121212, end: 201612
  6. NOVOLOG [Suspect]
     Active Substance: INSULIN ASPART
     Dosage: 27 U, SINGLE
     Route: 058
     Dates: start: 201612

REACTIONS (5)
  - Blood glucose decreased [Recovered/Resolved]
  - Blood glucose increased [Recovered/Resolved]
  - Diabetic retinopathy [Not Recovered/Not Resolved]
  - Accidental overdose [Unknown]
  - Neuropathy peripheral [Not Recovered/Not Resolved]

NARRATIVE: CASE EVENT DATE: 2014
